FAERS Safety Report 18755792 (Version 1)
Quarter: 2021Q1

REPORT INFORMATION
  Report Type: Spontaneous
  Country: GB (occurrence: GB)
  Receive Date: 20210119
  Receipt Date: 20210119
  Transmission Date: 20210419
  Serious: Yes (Hospitalization)
  Sender: FDA-Public Use
  Company Number: GB-MYLANLABS-2021M1001799

PATIENT
  Age: 8 Year
  Sex: Female

DRUGS (12)
  1. MIDAZOLAM. [Interacting]
     Active Substance: MIDAZOLAM
     Indication: SEDATIVE THERAPY
     Dosage: 7.39 MILLIGRAM/KILOGRAM, INFUSION
  2. ISONIAZID. [Interacting]
     Active Substance: ISONIAZID
     Indication: LATENT TUBERCULOSIS
  3. CLONIDINE. [Concomitant]
     Active Substance: CLONIDINE
     Indication: SEDATION
     Dosage: INFUSION
  4. RIFAMPICIN [Suspect]
     Active Substance: RIFAMPIN
     Indication: INTERFERON GAMMA RELEASE ASSAY POSITIVE
     Route: 065
  5. PYRAZINAMIDE. [Interacting]
     Active Substance: PYRAZINAMIDE
     Indication: INTERFERON GAMMA RELEASE ASSAY POSITIVE
     Route: 065
  6. FENTANYL. [Concomitant]
     Active Substance: FENTANYL
     Indication: ANALGESIC THERAPY
  7. RIFAMPICIN [Interacting]
     Active Substance: RIFAMPIN
     Indication: LATENT TUBERCULOSIS
  8. ISONIAZID. [Interacting]
     Active Substance: ISONIAZID
     Indication: INTERFERON GAMMA RELEASE ASSAY POSITIVE
     Route: 065
  9. MIDAZOLAM. [Interacting]
     Active Substance: MIDAZOLAM
     Indication: ANALGESIC THERAPY
     Dosage: DOSE INCREASED AND...
  10. PYRAZINAMIDE. [Interacting]
     Active Substance: PYRAZINAMIDE
     Indication: LATENT TUBERCULOSIS
  11. FENTANYL. [Concomitant]
     Active Substance: FENTANYL
     Indication: SEDATION
     Dosage: INFUSION
  12. CLONIDINE. [Concomitant]
     Active Substance: CLONIDINE
     Indication: ANALGESIC THERAPY

REACTIONS (3)
  - Drug interaction [Recovering/Resolving]
  - Delirium [Recovering/Resolving]
  - Withdrawal syndrome [Recovering/Resolving]
